FAERS Safety Report 5692867-4 (Version None)
Quarter: 2008Q2

REPORT INFORMATION
  Report Type: 
  Country: None (occurrence: None)
  Receive Date: 20080401
  Receipt Date: 20080319
  Transmission Date: 20081010
  Serious: Yes (Death)
  Sender: FDA-Public Use
  Company Number: POMP-1000100

PATIENT
  Age: 39 Year
  Sex: Male
  Weight: 43 kg

DRUGS (2)
  1. MYOZYME [Suspect]
     Indication: GLYCOGEN STORAGE DISEASE TYPE II
     Dosage: 20 MG/KG,   INTRAVENOUS
     Route: 042
     Dates: start: 20070411, end: 20071019
  2. ANTIBIOTICS [Concomitant]

REACTIONS (6)
  - CARDIAC FAILURE [None]
  - HAEMOTHORAX [None]
  - PNEUMOTHORAX [None]
  - PYREXIA [None]
  - RESPIRATORY FAILURE [None]
  - SEPSIS [None]
